FAERS Safety Report 25094619 (Version 3)
Quarter: 2025Q2

REPORT INFORMATION
  Report Type: Spontaneous
  Country: US (occurrence: US)
  Receive Date: 20250319
  Receipt Date: 20250402
  Transmission Date: 20250716
  Serious: Yes (Life-Threatening, Hospitalization, Other)
  Sender: PFIZER
  Company Number: US-PFIZER INC-PV202500032234

PATIENT
  Age: 51 Year
  Sex: Female

DRUGS (1)
  1. METHOTREXATE SODIUM [Suspect]
     Active Substance: METHOTREXATE SODIUM
     Indication: Rheumatoid arthritis

REACTIONS (5)
  - Pulmonary toxicity [Unknown]
  - Acute respiratory distress syndrome [Unknown]
  - Organising pneumonia [Recovering/Resolving]
  - Sepsis [Recovering/Resolving]
  - Respiratory failure [Recovering/Resolving]
